FAERS Safety Report 9643893 (Version 2)
Quarter: 2013Q4

REPORT INFORMATION
  Report Type: Spontaneous
  Country: DE (occurrence: DE)
  Receive Date: 20131024
  Receipt Date: 20131024
  Transmission Date: 20140711
  Serious: Yes (Other)
  Sender: FDA-Public Use
  Company Number: DE-ABBVIE-13P-062-1058016-00

PATIENT
  Age: 45 Year
  Sex: Male

DRUGS (9)
  1. ZEMPLAR [Suspect]
     Indication: RENAL FAILURE CHRONIC
     Dosage: 1X1
     Route: 042
     Dates: end: 201301
  2. RAMIPRIL [Concomitant]
     Indication: PRODUCT USED FOR UNKNOWN INDICATION
  3. VIGANTOLETTEN [Concomitant]
     Indication: PRODUCT USED FOR UNKNOWN INDICATION
     Dosage: 1000 IU DAILY
  4. ACETYLSALICYLIC ACID [Concomitant]
     Indication: PRODUCT USED FOR UNKNOWN INDICATION
     Dosage: 100 MG DAILY
  5. FOSRENOL [Concomitant]
     Indication: PRODUCT USED FOR UNKNOWN INDICATION
  6. LYRICA [Concomitant]
     Indication: PRODUCT USED FOR UNKNOWN INDICATION
  7. MIMPARA [Concomitant]
     Indication: PRODUCT USED FOR UNKNOWN INDICATION
  8. BONDIOL [Concomitant]
     Indication: PRODUCT USED FOR UNKNOWN INDICATION
  9. AMLODIPIN [Concomitant]
     Indication: PRODUCT USED FOR UNKNOWN INDICATION
     Dosage: FREQUENCY: 0.5 FREQUENCY TIME: 1 DAYS

REACTIONS (8)
  - Septic shock [Unknown]
  - Mastoiditis [Unknown]
  - Sinusitis [Unknown]
  - Acute myocardial infarction [Unknown]
  - Removal of transplanted organ [Unknown]
  - Encephalitis [Unknown]
  - Status epilepticus [Unknown]
  - Gynaecomastia [Recovering/Resolving]
